FAERS Safety Report 9393529 (Version 1)
Quarter: 2013Q3

REPORT INFORMATION
  Report Type: Spontaneous
  Country: GB (occurrence: GB)
  Receive Date: 20130710
  Receipt Date: 20130710
  Transmission Date: 20140515
  Serious: Yes (Other)
  Sender: FDA-Public Use
  Company Number: GB-GLAXOSMITHKLINE-B0901662A

PATIENT
  Age: 54 Year
  Sex: Female
  Weight: 78 kg

DRUGS (9)
  1. ARZERRA [Suspect]
     Indication: CHRONIC LYMPHOCYTIC LEUKAEMIA
     Route: 042
     Dates: start: 20130514, end: 20130514
  2. BENDAMUSTINE [Concomitant]
     Indication: CHRONIC LYMPHOCYTIC LEUKAEMIA
     Route: 042
     Dates: start: 20130416, end: 20130514
  3. PIRITON [Concomitant]
     Indication: PREMEDICATION
     Route: 065
  4. HYDROCORTISONE [Concomitant]
     Indication: PREMEDICATION
     Route: 065
  5. PARACETAMOL [Concomitant]
     Indication: PREMEDICATION
     Route: 065
  6. CO-TRIMOXAZOLE [Concomitant]
     Indication: CHRONIC LYMPHOCYTIC LEUKAEMIA
     Dosage: 480MG TWICE PER DAY
     Route: 048
     Dates: start: 201212
  7. TAZOCIN [Concomitant]
     Indication: INFECTION
     Route: 042
     Dates: start: 20130512, end: 20130516
  8. ONDANSETRON [Concomitant]
     Indication: MALAISE
     Route: 042
     Dates: start: 20130514, end: 20130517
  9. HUMULIN M3 [Concomitant]
     Indication: DIABETES MELLITUS
     Route: 058

REACTIONS (10)
  - Pulmonary oedema [Recovered/Resolved]
  - Paraesthesia oral [Recovered/Resolved]
  - Rales [Recovered/Resolved]
  - Blood pressure decreased [Recovered/Resolved]
  - Tachycardia [Recovered/Resolved]
  - Swollen tongue [Recovered/Resolved]
  - Dizziness [Recovered/Resolved]
  - Chest discomfort [Recovered/Resolved]
  - Infusion related reaction [Recovered/Resolved]
  - Off label use [Unknown]
